FAERS Safety Report 17946684 (Version 12)
Quarter: 2021Q3

REPORT INFORMATION
  Report Type: Report from Study
  Country: CA (occurrence: CA)
  Receive Date: 20200625
  Receipt Date: 20210927
  Transmission Date: 20211014
  Serious: Yes (Other)
  Sender: FDA-Public Use
  Company Number: PHHY2015CA043858

PATIENT
  Age: 75 Year
  Sex: Female

DRUGS (4)
  1. SANDOSTATIN LAR DEPOT [Suspect]
     Active Substance: OCTREOTIDE ACETATE
  2. SANDOSTATIN LAR DEPOT [Suspect]
     Active Substance: OCTREOTIDE ACETATE
  3. MAGNESIUM [Suspect]
     Active Substance: MAGNESIUM
     Indication: BLOOD GLUCOSE DECREASED
     Dosage: 100 MG, UNK
     Route: 065
     Dates: start: 20190217
  4. SANDOSTATIN LAR DEPOT [Suspect]
     Active Substance: OCTREOTIDE ACETATE
     Indication: PITUITARY TUMOUR
     Dosage: 20 MG, QMO
     Route: 030
     Dates: start: 20100913

REACTIONS (42)
  - Neoplasm malignant [Unknown]
  - Abdominal pain lower [Not Recovered/Not Resolved]
  - Body temperature decreased [Unknown]
  - Heart rate increased [Unknown]
  - Crepitations [Unknown]
  - Peripheral coldness [Not Recovered/Not Resolved]
  - Urticaria [Unknown]
  - Spinal compression fracture [Unknown]
  - Cough [Not Recovered/Not Resolved]
  - Exertional headache [Unknown]
  - Stress [Unknown]
  - Rash [Recovering/Resolving]
  - Abdominal pain upper [Unknown]
  - Fatigue [Unknown]
  - Dysphonia [Unknown]
  - Muscle strain [Not Recovered/Not Resolved]
  - Muscle spasms [Unknown]
  - Hypersomnia [Unknown]
  - Breast mass [Unknown]
  - Dermatitis allergic [Recovering/Resolving]
  - Rhonchi [Unknown]
  - Anxiety [Unknown]
  - Heart rate decreased [Unknown]
  - Decreased appetite [Unknown]
  - Injection site mass [Unknown]
  - Lymphoma [Unknown]
  - Blood cholesterol increased [Unknown]
  - Productive cough [Unknown]
  - Mass [Unknown]
  - Groin pain [Unknown]
  - Blood pressure increased [Unknown]
  - Nasopharyngitis [Unknown]
  - Throat irritation [Unknown]
  - Movement disorder [Unknown]
  - Weight decreased [Unknown]
  - Procedural pain [Unknown]
  - Cholelithiasis [Unknown]
  - Blood glucose decreased [Recovering/Resolving]
  - Asthenia [Unknown]
  - Malaise [Unknown]
  - Back pain [Recovering/Resolving]
  - Dizziness [Unknown]

NARRATIVE: CASE EVENT DATE: 20150405
